FAERS Safety Report 24069867 (Version 1)
Quarter: 2024Q3

REPORT INFORMATION
  Report Type: Report from Study
  Country: RO (occurrence: RO)
  Receive Date: 20240710
  Receipt Date: 20240710
  Transmission Date: 20241017
  Serious: No
  Sender: ROCHE
  Company Number: RO-ROCHE-3564706

PATIENT
  Age: 62 Year
  Sex: Female
  Weight: 115.0 kg

DRUGS (1)
  1. PHESGO [Suspect]
     Active Substance: HYALURONIDASE-ZZXF\PERTUZUMAB\TRASTUZUMAB
     Indication: Neoplasm malignant
     Dosage: DOSE 600 MG/600 MG. 1 VIAL 10 ML.?METHOD OF ADMINISTRATION IN THE LEG.
     Route: 065

REACTIONS (4)
  - Illness [Unknown]
  - Abdominal pain upper [Unknown]
  - Gastrointestinal pain [Unknown]
  - Diarrhoea [Unknown]
